FAERS Safety Report 4485165-8 (Version None)
Quarter: 2004Q4

REPORT INFORMATION
  Report Type: 
  Country: None (occurrence: None)
  Receive Date: 20041026
  Receipt Date: 20040123
  Transmission Date: 20050328
  Serious: No
  Sender: FDA-Public Use
  Company Number: US-BRISTOL-MYERS SQUIBB COMPANY-12486866

PATIENT
  Age: 77 Year
  Sex: Male
  Weight: 77 kg

DRUGS (13)
  1. GLUCOPHAGE XR [Suspect]
     Indication: DIABETES MELLITUS
     Route: 048
     Dates: start: 20030101
  2. GLUCOPHAGE [Suspect]
     Indication: DIABETES MELLITUS
     Dates: start: 20020101
  3. PLAVIX [Concomitant]
  4. GLYBURIDE [Concomitant]
  5. LOPRESSOR [Concomitant]
  6. IMDUR [Concomitant]
  7. TRIAMTERENE AND HYDROCHLOROTHIAZIDE [Concomitant]
  8. MONOPRIL [Concomitant]
  9. LOPID [Concomitant]
  10. PROCARDIA [Concomitant]
  11. ZOCOR [Concomitant]
  12. FOLIC ACID [Concomitant]
  13. ECOTRIN [Concomitant]

REACTIONS (1)
  - DIARRHOEA [None]
